FAERS Safety Report 7799010-6 (Version None)
Quarter: 2011Q4

REPORT INFORMATION
  Report Type: 
  Country: None (occurrence: None)
  Receive Date: 20111005
  Receipt Date: 20111005
  Transmission Date: 20120403
  Serious: Yes (Disabling)
  Sender: FDA-Public Use
  Company Number: None

PATIENT
  Age: 54 Year
  Sex: Male

DRUGS (1)
  1. ABILIFY [Suspect]
     Indication: MAJOR DEPRESSION
     Dosage: 10MG ONCE DAILY
     Dates: start: 20091001, end: 20100701

REACTIONS (2)
  - DYSKINESIA [None]
  - TARDIVE DYSKINESIA [None]
